FAERS Safety Report 6251789-0 (Version None)
Quarter: 2009Q2

REPORT INFORMATION
  Report Type: 
  Country: None (occurrence: None)
  Receive Date: 20090626
  Receipt Date: 20090420
  Transmission Date: 20091009
  Serious: Yes (Other)
  Sender: FDA-Public Use
  Company Number: 628600

PATIENT
  Age: 61 Year
  Sex: Female

DRUGS (9)
  1. CAPECITABINE [Suspect]
     Indication: METASTASES TO CENTRAL NERVOUS SYSTEM
  2. TRASTUZUMAB (TRASTUZUMAB) [Suspect]
     Indication: BREAST CANCER
  3. NAVELBINE [Concomitant]
  4. ADRIAMYCIN PFS [Concomitant]
  5. CYCLOPHOSPHAMIDE [Concomitant]
  6. PACLITAXEL [Concomitant]
  7. LETROZOLE [Concomitant]
  8. EXEMESTANE [Concomitant]
  9. CYTARABINE [Concomitant]

REACTIONS (7)
  - ATAXIA [None]
  - BRAIN CANCER METASTATIC [None]
  - CONVULSION [None]
  - GAIT DISTURBANCE [None]
  - HEADACHE [None]
  - MALIGNANT NEOPLASM PROGRESSION [None]
  - METASTASES TO CENTRAL NERVOUS SYSTEM [None]
